FAERS Safety Report 22121401 (Version 1)
Quarter: 2023Q1

REPORT INFORMATION
  Report Type: Spontaneous
  Country: US (occurrence: None)
  Receive Date: 20230321
  Receipt Date: 20230321
  Transmission Date: 20230418
  Serious: No
  Sender: FDA-Public Use
  Company Number: None

PATIENT
  Age: 67 Year
  Sex: Female
  Weight: 84.32 kg

DRUGS (20)
  1. LENALIDOMIDE [Suspect]
     Active Substance: LENALIDOMIDE
     Indication: Plasma cell myeloma
     Dosage: OTHER FREQUENCY : 14D ON 7D OFF;?
     Route: 048
     Dates: start: 202302
  2. AMOXICILLIN [Concomitant]
  3. ASCORBIC ACID [Concomitant]
  4. AUGMENTIN [Concomitant]
  5. CALTRATE [Concomitant]
  6. CELEXA [Concomitant]
  7. DEXAMETHASONE [Concomitant]
  8. ERGOCALCIFEROL [Concomitant]
  9. FERROUS [Concomitant]
  10. GABAPENTIN [Concomitant]
  11. METFORMIN [Concomitant]
  12. MULTIVITAMINS [Concomitant]
  13. OLANZAPINE [Concomitant]
  14. OMEPRAZOLE [Concomitant]
  15. ONDANSETRON [Concomitant]
  16. PRESERVISION AREDS [Concomitant]
  17. VESICARE [Concomitant]
  18. VITAMIN B12 [Concomitant]
  19. XARELTO [Concomitant]
  20. ZINC [Concomitant]

REACTIONS (1)
  - Neutrophil count decreased [None]
